FAERS Safety Report 24589382 (Version 1)
Quarter: 2024Q4

REPORT INFORMATION
  Report Type: Spontaneous
  Country: PL (occurrence: PL)
  Receive Date: 20241107
  Receipt Date: 20241107
  Transmission Date: 20250114
  Serious: Yes (Life-Threatening, Hospitalization, Other)
  Sender: SANDOZ
  Company Number: PL-002147023-NVSC2021PL044863

PATIENT
  Age: 65 Year
  Sex: Female

DRUGS (56)
  1. CYCLOPHOSPHAMIDE [Suspect]
     Active Substance: CYCLOPHOSPHAMIDE
     Dosage: R-CHOP REGIMEN; DOSE REDUCED
     Route: 065
     Dates: start: 201709, end: 201709
  2. CYCLOPHOSPHAMIDE [Suspect]
     Active Substance: CYCLOPHOSPHAMIDE
     Indication: Diffuse large B-cell lymphoma stage III
     Dosage: UNK UNK, CYCLIC (UNK, UNK QCY)
     Route: 065
     Dates: start: 20170904, end: 20170905
  3. CYCLOPHOSPHAMIDE [Suspect]
     Active Substance: CYCLOPHOSPHAMIDE
     Indication: Post transplant lymphoproliferative disorder
     Dosage: UNK UNK, CYCLIC (UNK, UNK QCY)
     Route: 065
     Dates: start: 20170925, end: 20170926
  4. CYCLOPHOSPHAMIDE [Suspect]
     Active Substance: CYCLOPHOSPHAMIDE
     Dosage: UNK UNK, CYCLIC (UNK, UNK QCY)
     Route: 065
     Dates: start: 20171018, end: 20171019
  5. CYCLOPHOSPHAMIDE [Suspect]
     Active Substance: CYCLOPHOSPHAMIDE
     Dosage: UNK UNK, CYCLIC (UNK, UNK QCY)
     Route: 065
     Dates: start: 20171108, end: 20171109
  6. CYCLOPHOSPHAMIDE [Suspect]
     Active Substance: CYCLOPHOSPHAMIDE
     Dosage: UNK UNK, CYCLIC (UNK, UNK QCY)
     Route: 065
     Dates: start: 20171215, end: 20171216
  7. CYCLOPHOSPHAMIDE [Suspect]
     Active Substance: CYCLOPHOSPHAMIDE
     Dosage: UNK UNK, CYCLIC (UNK, UNK QCY)
     Route: 065
     Dates: start: 20180301
  8. CYCLOPHOSPHAMIDE [Suspect]
     Active Substance: CYCLOPHOSPHAMIDE
     Dosage: UNK UNK, CYCLIC (UNK, UNK QCY), R-CHOP REGIMEN; REDUCED BY 30 PERCENT
     Route: 065
     Dates: start: 20180123, end: 20180301
  9. CYCLOSPORINE [Suspect]
     Active Substance: CYCLOSPORINE
     Indication: Immunosuppressant drug therapy
     Dosage: UNK
     Route: 065
     Dates: end: 201801
  10. CYCLOSPORINE [Suspect]
     Active Substance: CYCLOSPORINE
     Indication: Renal transplant
     Dosage: UNK
     Route: 065
     Dates: start: 2006, end: 2018
  11. DOXORUBICIN [Suspect]
     Active Substance: DOXORUBICIN
     Dosage: R-CHOP REGIMEN; DOSE REDUCED
     Route: 065
     Dates: start: 201709, end: 201709
  12. DOXORUBICIN [Suspect]
     Active Substance: DOXORUBICIN
     Indication: Diffuse large B-cell lymphoma stage III
     Dosage: UNK UNK, CYCLIC (UNK, UNK QCY)
     Route: 065
     Dates: start: 20170904, end: 20170905
  13. DOXORUBICIN [Suspect]
     Active Substance: DOXORUBICIN
     Dosage: UNK UNK, CYCLIC (UNK, UNK QCY)
     Route: 065
     Dates: start: 20170925, end: 20170926
  14. DOXORUBICIN [Suspect]
     Active Substance: DOXORUBICIN
     Dosage: UNK UNK, CYCLIC (UNK, UNK QCY)
     Route: 065
     Dates: start: 20171018, end: 20171019
  15. DOXORUBICIN [Suspect]
     Active Substance: DOXORUBICIN
     Dosage: UNK UNK, CYCLIC (UNK, UNK QCY)
     Route: 065
     Dates: start: 20171108, end: 20171109
  16. DOXORUBICIN [Suspect]
     Active Substance: DOXORUBICIN
     Dosage: UNK UNK, CYCLIC (UNK, UNK QCY)
     Route: 065
     Dates: start: 20171215, end: 20171216
  17. DOXORUBICIN [Suspect]
     Active Substance: DOXORUBICIN
     Dosage: UNK UNK, CYCLIC (UNK, UNK QCY)
     Route: 065
     Dates: start: 20180301
  18. DOXORUBICIN [Suspect]
     Active Substance: DOXORUBICIN
     Dosage: UNK UNK, CYCLIC (UNK, UNK QCY)R-CHOP REGIMEN; REDUCED BY 30 PERCENT
     Route: 065
     Dates: start: 20180123, end: 20180301
  19. DOXORUBICIN [Suspect]
     Active Substance: DOXORUBICIN
     Indication: Post transplant lymphoproliferative disorder
     Dosage: UNK, CYCLIC R-CHOP REGIMEN; DOSE REDUCED
     Route: 065
     Dates: start: 201709, end: 201709
  20. MYCOPHENOLATE MOFETIL [Suspect]
     Active Substance: MYCOPHENOLATE MOFETIL
     Indication: Immunosuppressant drug therapy
     Dosage: UNK
     Route: 065
     Dates: end: 201709
  21. MYCOPHENOLATE MOFETIL [Suspect]
     Active Substance: MYCOPHENOLATE MOFETIL
     Indication: Renal transplant
     Dosage: UNK
     Route: 065
     Dates: start: 2006, end: 2017
  22. PREDNISONE [Suspect]
     Active Substance: PREDNISONE
     Indication: Diffuse large B-cell lymphoma stage III
     Dosage: UNK UNK, CYCLIC (UNK, UNK QCY)
     Route: 065
     Dates: start: 20170904, end: 20170905
  23. PREDNISONE [Suspect]
     Active Substance: PREDNISONE
     Indication: Post transplant lymphoproliferative disorder
     Dosage: UNK UNK, CYCLIC (UNK, UNK QCY)
     Route: 065
     Dates: start: 20170925, end: 20170926
  24. PREDNISONE [Suspect]
     Active Substance: PREDNISONE
     Dosage: UNK UNK, CYCLIC (UNK, UNK QCY)
     Route: 065
     Dates: start: 20171018, end: 20171019
  25. PREDNISONE [Suspect]
     Active Substance: PREDNISONE
     Dosage: UNK UNK, CYCLIC (UNK, UNK QCY)
     Route: 065
     Dates: start: 20171108, end: 20171109
  26. PREDNISONE [Suspect]
     Active Substance: PREDNISONE
     Dosage: UNK UNK, CYCLIC (UNK, UNK QCY)
     Route: 065
     Dates: start: 20171215, end: 20171216
  27. PREDNISONE [Suspect]
     Active Substance: PREDNISONE
     Dosage: UNK UNK, CYCLIC (UNK, UNK QCY)
     Route: 065
     Dates: start: 20180301
  28. PREDNISONE [Suspect]
     Active Substance: PREDNISONE
     Dosage: UNK UNK, CYCLIC (UNK, UNK QCY), R-CHOP REGIMEN; REDUCED BY 30 PERCENT
     Route: 065
     Dates: start: 20180123, end: 20180301
  29. PREDNISONE [Suspect]
     Active Substance: PREDNISONE
     Dosage: UNK UNK, CYCLIC R-CHOP REGIMEN; DOSE REDUCED
     Route: 065
     Dates: start: 201709, end: 201709
  30. RITUXIMAB [Suspect]
     Active Substance: RITUXIMAB
     Dosage: R-CHOP REGIMEN; REDUCED BY 30 PERCENT
     Route: 065
     Dates: start: 20180123, end: 20180301
  31. RITUXIMAB [Suspect]
     Active Substance: RITUXIMAB
     Indication: Diffuse large B-cell lymphoma stage III
     Dosage: UNK UNK, CYCLIC (UNK, UNK QCY)
     Route: 065
     Dates: start: 20170904, end: 20170905
  32. RITUXIMAB [Suspect]
     Active Substance: RITUXIMAB
     Dosage: UNK UNK, CYCLIC (UNK, UNK QCY)
     Route: 065
     Dates: start: 20170925, end: 20170926
  33. RITUXIMAB [Suspect]
     Active Substance: RITUXIMAB
     Dosage: UNK UNK, CYCLIC (UNK, UNK QCY)
     Route: 065
     Dates: start: 20171018, end: 20171019
  34. RITUXIMAB [Suspect]
     Active Substance: RITUXIMAB
     Dosage: UNK UNK, CYCLIC (UNK, UNK QCY)
     Route: 065
     Dates: start: 20171108, end: 20171109
  35. RITUXIMAB [Suspect]
     Active Substance: RITUXIMAB
     Dosage: UNK UNK, CYCLIC (UNK, UNK QCY)
     Route: 065
     Dates: start: 20171215, end: 20171216
  36. RITUXIMAB [Suspect]
     Active Substance: RITUXIMAB
     Indication: Post transplant lymphoproliferative disorder
     Dosage: UNK UNK, CYCLIC R-CHOP REGIMEN
     Route: 065
     Dates: start: 201709, end: 201709
  37. RITUXIMAB [Suspect]
     Active Substance: RITUXIMAB
     Dosage: UNK, CYCLIC (UNK, UNK QCY)
     Route: 065
     Dates: start: 20180301
  38. VINCRISTINE SULFATE [Suspect]
     Active Substance: VINCRISTINE SULFATE
     Dosage: R-CHOP REGIMEN; REDUCED BY 30%
     Route: 065
     Dates: start: 20180123, end: 20180301
  39. VINCRISTINE SULFATE [Suspect]
     Active Substance: VINCRISTINE SULFATE
     Indication: Diffuse large B-cell lymphoma stage III
     Dosage: UNK UNK, CYCLIC (UNK, UNK QCY)
     Route: 065
     Dates: start: 20170904, end: 20170905
  40. VINCRISTINE SULFATE [Suspect]
     Active Substance: VINCRISTINE SULFATE
     Indication: Post transplant lymphoproliferative disorder
     Dosage: UNK UNK, CYCLIC (UNK, UNK QCY)
     Route: 065
     Dates: start: 20170925, end: 20170926
  41. VINCRISTINE SULFATE [Suspect]
     Active Substance: VINCRISTINE SULFATE
     Dosage: UNK UNK, CYCLIC (UNK, UNK QCY)
     Route: 065
     Dates: start: 20171018, end: 20171019
  42. VINCRISTINE SULFATE [Suspect]
     Active Substance: VINCRISTINE SULFATE
     Dosage: UNK UNK, CYCLIC (UNK, UNK QCY)
     Route: 065
     Dates: start: 20171108, end: 20171109
  43. VINCRISTINE SULFATE [Suspect]
     Active Substance: VINCRISTINE SULFATE
     Dosage: UNK UNK, CYCLIC (UNK, UNK QCY)
     Route: 065
     Dates: start: 20171215, end: 20171216
  44. VINCRISTINE SULFATE [Suspect]
     Active Substance: VINCRISTINE SULFATE
     Dosage: UNK UNK, CYCLIC (UNK, UNK QCY)
     Route: 065
     Dates: start: 20180301
  45. VINCRISTINE SULFATE [Suspect]
     Active Substance: VINCRISTINE SULFATE
     Dosage: UNK, R-CHOP REGIMEN, DOSE REDUCED
     Route: 065
     Dates: start: 201709, end: 201709
  46. COTRIMOXAZOLE [Concomitant]
     Active Substance: SULFAMETHOXAZOLE\TRIMETHOPRIM
     Dosage: 960 MG, BID (Q12H)
     Route: 042
  47. COTRIMOXAZOLE [Concomitant]
     Active Substance: SULFAMETHOXAZOLE\TRIMETHOPRIM
     Indication: Antifungal prophylaxis
     Dosage: UNK
     Route: 065
     Dates: start: 2017
  48. COTRIMOXAZOLE [Concomitant]
     Active Substance: SULFAMETHOXAZOLE\TRIMETHOPRIM
     Dosage: UNK
     Route: 065
  49. COTRIMOXAZOLE [Concomitant]
     Active Substance: SULFAMETHOXAZOLE\TRIMETHOPRIM
     Dosage: UNK
     Route: 065
  50. COTRIMOXAZOLE [Concomitant]
     Active Substance: SULFAMETHOXAZOLE\TRIMETHOPRIM
     Dosage: UNK
     Route: 065
  51. COTRIMOXAZOLE [Concomitant]
     Active Substance: SULFAMETHOXAZOLE\TRIMETHOPRIM
     Dosage: UNK
     Route: 065
  52. FILGRASTIM [Concomitant]
     Active Substance: FILGRASTIM
     Indication: Febrile neutropenia
     Dosage: UNK
     Route: 065
     Dates: start: 2017
  53. FILGRASTIM [Concomitant]
     Active Substance: FILGRASTIM
     Indication: Prophylaxis
     Dosage: UNK
     Route: 065
     Dates: start: 2017
  54. FILGRASTIM [Concomitant]
     Active Substance: FILGRASTIM
     Dosage: UNK
     Route: 065
     Dates: start: 2017
  55. FILGRASTIM [Concomitant]
     Active Substance: FILGRASTIM
     Dosage: UNK
     Route: 065
     Dates: start: 2017
  56. FILGRASTIM [Concomitant]
     Active Substance: FILGRASTIM
     Dosage: UNK
     Route: 065
     Dates: start: 2017

REACTIONS (15)
  - Neutropenia [Recovered/Resolved]
  - Anaemia [Recovered/Resolved]
  - Pancytopenia [Recovered/Resolved]
  - Staphylococcal infection [Recovered/Resolved]
  - Klebsiella infection [Recovered/Resolved]
  - Atrial fibrillation [Recovered/Resolved]
  - Asthenia [Recovered/Resolved]
  - Dysuria [Recovered/Resolved]
  - Febrile neutropenia [Recovered/Resolved]
  - Oedema peripheral [Recovered/Resolved]
  - Pneumocystis jirovecii infection [Recovered/Resolved]
  - Oedema [Unknown]
  - Respiratory tract infection [Recovering/Resolving]
  - Urinary tract infection [Recovering/Resolving]
  - Product use in unapproved indication [Unknown]

NARRATIVE: CASE EVENT DATE: 20170101
